FAERS Safety Report 24286997 (Version 1)
Quarter: 2024Q3

REPORT INFORMATION
  Report Type: Spontaneous
  Country: US (occurrence: None)
  Receive Date: 20240903
  Receipt Date: 20240903
  Transmission Date: 20241017
  Serious: Yes (Other)
  Sender: Public
  Company Number: None

PATIENT
  Age: 14 Year
  Sex: Male

DRUGS (1)
  1. STELARA [Suspect]
     Active Substance: USTEKINUMAB
     Indication: Crohn^s disease
     Dosage: OTHER FREQUENCY : EVERY6WEEKS;?
     Route: 058
     Dates: start: 20220111, end: 20240903

REACTIONS (2)
  - Intestinal perforation [None]
  - Therapy interrupted [None]

NARRATIVE: CASE EVENT DATE: 20240903
